FAERS Safety Report 9919390 (Version 1)
Quarter: 2014Q1

REPORT INFORMATION
  Report Type: Spontaneous
  Country: US (occurrence: US)
  Receive Date: 20140224
  Receipt Date: 20140224
  Transmission Date: 20141002
  Serious: Yes (Other)
  Sender: FDA-Public Use
  Company Number: US-PFIZER INC-2014051409

PATIENT
  Sex: Male

DRUGS (2)
  1. GEODON [Suspect]
     Indication: PSYCHOTIC DISORDER
     Dosage: 10 MG, 2X/DAY
     Route: 030
  2. GEODON [Suspect]
     Dosage: UNK
     Route: 030

REACTIONS (8)
  - Renal impairment [Unknown]
  - Tremor [Unknown]
  - Pain [Unknown]
  - Feeling abnormal [Unknown]
  - Restlessness [Unknown]
  - Agitation [Unknown]
  - Pre-existing condition improved [Unknown]
  - Therapeutic response unexpected [Unknown]
